FAERS Safety Report 4986949-X (Version None)
Quarter: 2006Q2

REPORT INFORMATION
  Report Type: 
  Country: None (occurrence: None)
  Receive Date: 20060427
  Receipt Date: 20060427
  Transmission Date: 20061013
  Serious: Yes (Death, Hospitalization)
  Sender: FDA-Public Use
  Company Number: None

PATIENT
  Age: 70 Year
  Sex: Female
  Weight: 56.246 kg

DRUGS (9)
  1. TARCEVA [Suspect]
     Indication: BREAST CANCER METASTATIC
     Dosage: 100 MG QD
     Dates: start: 20060325, end: 20060330
  2. RAD001 (EVEROLIMUS)- NOVARTIS [Suspect]
     Indication: BREAST CANCER METASTATIC
     Dosage: 2.5 MG QD
     Dates: start: 20060325, end: 20060330
  3. ALBUTEROL SULFATE AUTOHALER [Concomitant]
  4. ADVAIR DISKUS 100/50 [Concomitant]
  5. LISINOPRIL [Concomitant]
  6. HYDROCODONE [Concomitant]
  7. GLIPIZIDE [Concomitant]
  8. PHENERGAN HCL [Concomitant]
  9. MORPHINE ELIXIR [Concomitant]

REACTIONS (7)
  - ASPARTATE AMINOTRANSFERASE INCREASED [None]
  - BILIARY DILATATION [None]
  - BLOOD BILIRUBIN INCREASED [None]
  - DISEASE PROGRESSION [None]
  - HYDRONEPHROSIS [None]
  - MENTAL STATUS CHANGES [None]
  - RENAL FAILURE ACUTE [None]
